FAERS Safety Report 7471988-X (Version None)
Quarter: 2011Q2

REPORT INFORMATION
  Report Type: 
  Country: None (occurrence: None)
  Receive Date: 20110511
  Receipt Date: 20100909
  Transmission Date: 20111010
  Serious: No
  Sender: FDA-Public Use
  Company Number: A0880513A

PATIENT
  Age: 35 Year
  Sex: Female

DRUGS (3)
  1. PHENERGAN HCL [Concomitant]
  2. AROMASIN [Concomitant]
  3. TYKERB [Suspect]
     Indication: BREAST CANCER
     Dosage: 1000MG PER DAY
     Route: 048
     Dates: start: 20100728

REACTIONS (2)
  - INFLUENZA [None]
  - DEHYDRATION [None]
